FAERS Safety Report 8195742-9 (Version None)
Quarter: 2012Q1

REPORT INFORMATION
  Report Type: 
  Country: None (occurrence: None)
  Receive Date: 20120308
  Receipt Date: 20120306
  Transmission Date: 20120608
  Serious: Yes (Hospitalization, Other)
  Sender: FDA-Public Use
  Company Number: US-ABBOTT-12P-163-0912379-00

PATIENT
  Age: 39 Year
  Sex: Male

DRUGS (2)
  1. PENTASA [Concomitant]
     Indication: CROHN'S DISEASE
     Dosage: 4 TABS IN MORNING AND 4 TABS IN EVENING
     Route: 048
     Dates: start: 20050101
  2. HUMIRA [Suspect]
     Indication: CROHN'S DISEASE
     Dates: start: 20111101

REACTIONS (5)
  - DEVICE MALFUNCTION [None]
  - CONSTIPATION [None]
  - MUSCLE SPASMS [None]
  - CROHN'S DISEASE [None]
  - DRUG DOSE OMISSION [None]
